FAERS Safety Report 5958303-5 (Version None)
Quarter: 2008Q4

REPORT INFORMATION
  Report Type: 
  Country: None (occurrence: None)
  Receive Date: 20081119
  Receipt Date: 20081111
  Transmission Date: 20090506
  Serious: Yes (Disabling)
  Sender: FDA-Public Use
  Company Number: CH-MERCK-0811CHE00007

PATIENT
  Age: 78 Year
  Sex: Female
  Weight: 50 kg

DRUGS (7)
  1. FOSAMAX [Suspect]
     Indication: OSTEOPOROSIS
     Route: 048
     Dates: start: 20040901, end: 20080801
  2. ZOLEDRONIC ACID [Suspect]
     Indication: BREAST CANCER
     Route: 042
     Dates: start: 20040701, end: 20080601
  3. GLICLAZIDE [Concomitant]
     Indication: DIABETES MELLITUS
     Route: 065
  4. LETROZOLE [Concomitant]
     Indication: BREAST CANCER
     Route: 065
     Dates: start: 20040501, end: 20070901
  5. FULVESTRANT [Concomitant]
     Indication: BREAST CANCER
     Route: 065
     Dates: start: 20060901, end: 20070401
  6. MEGESTROL ACETATE [Concomitant]
     Indication: BREAST CANCER
     Route: 065
     Dates: start: 20070401, end: 20071001
  7. CAPECITABINE [Concomitant]
     Indication: BREAST CANCER
     Route: 065
     Dates: start: 20071001

REACTIONS (2)
  - DRUG PRESCRIBING ERROR [None]
  - OSTEONECROSIS [None]
